FAERS Safety Report 21533437 (Version 4)
Quarter: 2022Q4

REPORT INFORMATION
  Report Type: Spontaneous
  Country: RO (occurrence: RO)
  Receive Date: 20221101
  Receipt Date: 20221122
  Transmission Date: 20230112
  Serious: Yes (Other)
  Sender: FDA-Public Use
  Company Number: RO-ASTELLAS-2022US038443

PATIENT
  Age: 53 Year
  Sex: Male

DRUGS (5)
  1. ELIGARD [Suspect]
     Active Substance: LEUPROLIDE ACETATE
     Indication: Prostate cancer
     Dosage: 22.5 MG, EVERY 3 MONTHS (10 DAYS BEFORE PATIENT STARTED TREATMENT WITH BICALUTAMIDE)
     Route: 065
  2. ENZALUTAMIDE [Suspect]
     Active Substance: ENZALUTAMIDE
     Indication: Prostate cancer
     Dosage: 160 MG, ONCE DAILY (40 MG 4 CP/DAY)
     Route: 065
     Dates: start: 20200814, end: 20210214
  3. ENZALUTAMIDE [Suspect]
     Active Substance: ENZALUTAMIDE
     Dosage: 2 DF (REPORTED AS 2 CAPSULES), UNKNOWN FREQ.
     Route: 065
     Dates: start: 20210314, end: 20210914
  4. ENZALUTAMIDE [Suspect]
     Active Substance: ENZALUTAMIDE
     Dosage: 2 DF (REPORTED AS 2 CAPSULES), UNKNOWN FREQ.
     Route: 065
     Dates: start: 20211116
  5. BICALUTAMIDE [Suspect]
     Active Substance: BICALUTAMIDE
     Indication: Tumour flare
     Route: 065

REACTIONS (6)
  - Prostate cancer [Unknown]
  - Prostatic specific antigen increased [Unknown]
  - Blood testosterone increased [Recovered/Resolved]
  - Arthralgia [Unknown]
  - Pain in extremity [Unknown]
  - Pain [Unknown]

NARRATIVE: CASE EVENT DATE: 20200717
